FAERS Safety Report 9723075 (Version 1)
Quarter: 2013Q4

REPORT INFORMATION
  Report Type: Spontaneous
  Country: US (occurrence: None)
  Receive Date: 20131127
  Receipt Date: 20131127
  Transmission Date: 20140711
  Serious: Yes (Hospitalization)
  Sender: FDA-Public Use
  Company Number: None

PATIENT
  Age: 61 Year
  Sex: Female
  Weight: 62.5 kg

DRUGS (2)
  1. LEVOFLOXACIN [Suspect]
     Indication: COLITIS
     Dosage: 7 PILLS, QD ORAL
     Dates: start: 20130924, end: 20130928
  2. VALACYCLOVIR (VALTREX) [Concomitant]

REACTIONS (4)
  - Tendon rupture [None]
  - Tendonitis [None]
  - Arthralgia [None]
  - Joint swelling [None]
